FAERS Safety Report 9637607 (Version 1)
Quarter: 2013Q4

REPORT INFORMATION
  Report Type: Spontaneous
  Country: FR (occurrence: FR)
  Receive Date: 20131022
  Receipt Date: 20131022
  Transmission Date: 20140711
  Serious: Yes (Other)
  Sender: FDA-Public Use
  Company Number: FR-JNJFOC-20131010246

PATIENT
  Age: 66 Year
  Sex: Female

DRUGS (10)
  1. REMICADE [Suspect]
     Indication: PRODUCT USED FOR UNKNOWN INDICATION
     Route: 042
     Dates: start: 20130613, end: 20130626
  2. ENBREL [Suspect]
     Indication: PRODUCT USED FOR UNKNOWN INDICATION
     Route: 065
     Dates: start: 200909, end: 201306
  3. CALCIUM 500 [Concomitant]
     Route: 065
  4. ESOMEPRAZOLE MAGNESIUM [Concomitant]
     Route: 065
  5. FLUTICASONE PROPIONATE [Concomitant]
     Route: 065
  6. SERETIDE [Concomitant]
     Route: 065
  7. BETAMETHASONE DIPROPIONATE [Concomitant]
     Route: 065
  8. DAIVOBET [Concomitant]
     Route: 065
  9. EFFERALGAN [Concomitant]
     Route: 065
  10. XAMIOL [Concomitant]
     Route: 065

REACTIONS (2)
  - Adenocarcinoma of colon [Unknown]
  - Iron deficiency anaemia [Unknown]
